FAERS Safety Report 10588654 (Version 2)
Quarter: 2015Q1

REPORT INFORMATION
  Report Type: Report from Study
  Country: US (occurrence: US)
  Receive Date: 20141117
  Receipt Date: 20150225
  Transmission Date: 20150720
  Serious: Yes (Hospitalization, Other)
  Sender: FDA-Public Use
  Company Number: US-ACTELION-A-NJ2014-108441

PATIENT
  Age: 79 Year
  Sex: Female

DRUGS (4)
  1. VENTAVIS [Suspect]
     Active Substance: ILOPROST
     Indication: PULMONARY ARTERIAL HYPERTENSION
     Dosage: 5 MCG/ML, 5X/DAY
     Route: 055
     Dates: start: 20060616
  2. ASPIRIN. [Concomitant]
     Active Substance: ASPIRIN
     Dosage: 325 MG, QD
     Dates: start: 20091017
  3. VENTAVIS [Suspect]
     Active Substance: ILOPROST
     Dosage: 5 MCG, 6-9X/ADAY
     Route: 055
  4. WARFARIN [Concomitant]
     Active Substance: WARFARIN
     Dosage: 1 MG, UNK
     Route: 048
     Dates: start: 20120321

REACTIONS (7)
  - Hypoaesthesia [Unknown]
  - Somnolence [Unknown]
  - Back pain [Unknown]
  - Spinal column stenosis [Unknown]
  - Surgery [Unknown]
  - Treatment noncompliance [Unknown]
  - Malaise [Unknown]
